FAERS Safety Report 18400454 (Version 2)
Quarter: 2022Q1

REPORT INFORMATION
  Report Type: Spontaneous
  Country: CH (occurrence: CH)
  Receive Date: 20201019
  Receipt Date: 20220111
  Transmission Date: 20220423
  Serious: Yes (Life-Threatening, Hospitalization, Other)
  Sender: FDA-Public Use
  Company Number: CH-OTSUKA-2020_025234

PATIENT
  Age: 59 Year
  Sex: Female
  Weight: 77 kg

DRUGS (8)
  1. TOLVAPTAN [Suspect]
     Active Substance: TOLVAPTAN
     Indication: Congenital cystic kidney disease
     Dosage: 60 MG, QD
     Route: 048
     Dates: start: 20200803, end: 20200926
  2. TOLVAPTAN [Suspect]
     Active Substance: TOLVAPTAN
     Dosage: 60 MG
     Route: 065
  3. TOLVAPTAN [Suspect]
     Active Substance: TOLVAPTAN
     Dosage: 30 MG
     Route: 065
  4. LISINOPRIL [Concomitant]
     Active Substance: LISINOPRIL
     Indication: Hypertension
     Dosage: 20 MG, QD
     Route: 065
  5. LISINOPRIL [Concomitant]
     Active Substance: LISINOPRIL
     Indication: Nephroprotective therapy
  6. ALFUZOSIN [Concomitant]
     Active Substance: ALFUZOSIN
     Indication: Product used for unknown indication
     Dosage: 10 MG, QD
     Route: 048
  7. UROCIT [Concomitant]
     Indication: Product used for unknown indication
     Dosage: 1080 MG, TID
     Route: 048
  8. ATORVASTATIN [Concomitant]
     Active Substance: ATORVASTATIN
     Indication: Product used for unknown indication
     Dosage: 20 MG, QD
     Route: 048

REACTIONS (14)
  - Pulmonary embolism [Recovering/Resolving]
  - Atrial fibrillation [Recovering/Resolving]
  - Haematocrit increased [Recovering/Resolving]
  - Ventricular septal defect [Recovering/Resolving]
  - Bundle branch block right [Recovering/Resolving]
  - Pulmonary valve incompetence [Recovering/Resolving]
  - Tricuspid valve incompetence [Recovering/Resolving]
  - Ejection fraction decreased [Recovering/Resolving]
  - Pulmonary embolism [Unknown]
  - Hyponatraemia [Recovering/Resolving]
  - Hyperkalaemia [Recovering/Resolving]
  - Dehydration [Recovering/Resolving]
  - Haemoconcentration [Unknown]
  - Polyuria [Unknown]

NARRATIVE: CASE EVENT DATE: 20200928
